FAERS Safety Report 16286865 (Version 2)
Quarter: 2019Q2

REPORT INFORMATION
  Report Type: Spontaneous
  Country: ES (occurrence: ES)
  Receive Date: 20190508
  Receipt Date: 20190522
  Transmission Date: 20190711
  Serious: Yes (Hospitalization, Other)
  Sender: FDA-Public Use
  Company Number: ES-PFIZER INC-2019194387

PATIENT
  Age: 81 Year
  Sex: Female

DRUGS (1)
  1. METHOTREXATE SODIUM. [Suspect]
     Active Substance: METHOTREXATE SODIUM
     Indication: TEMPORAL ARTERITIS
     Dosage: 15 MG, WEEKLY
     Route: 058

REACTIONS (5)
  - Overdose [Unknown]
  - Bone marrow toxicity [Recovered/Resolved]
  - Product use in unapproved indication [Unknown]
  - Mucosal inflammation [Recovered/Resolved]
  - Off label use [Unknown]
